FAERS Safety Report 9237137 (Version 2)
Quarter: 2013Q3

REPORT INFORMATION
  Report Type: Report from Study
  Country: JP (occurrence: JP)
  Receive Date: 20130417
  Receipt Date: 20130903
  Transmission Date: 20140515
  Serious: No
  Sender: FDA-Public Use
  Company Number: JP-GLAXOSMITHKLINE-B0873811A

PATIENT
  Age: 84 Year
  Sex: Female
  Weight: 38 kg

DRUGS (6)
  1. TYKERB [Suspect]
     Indication: BREAST CANCER
     Route: 048
     Dates: start: 20100826, end: 20101118
  2. TYKERB [Suspect]
     Indication: BREAST CANCER
     Route: 048
     Dates: start: 20110526
  3. XELODA [Suspect]
     Indication: BREAST CANCER
     Route: 048
     Dates: start: 20100826, end: 20101006
  4. XELODA [Suspect]
     Indication: BREAST CANCER
     Route: 048
     Dates: start: 20101007, end: 20101020
  5. XELODA [Suspect]
     Indication: BREAST CANCER
     Route: 048
     Dates: start: 20110526, end: 20110608
  6. TRASTUZUMAB [Concomitant]
     Route: 042
     Dates: start: 20090713, end: 20100826

REACTIONS (1)
  - Paronychia [Not Recovered/Not Resolved]
